FAERS Safety Report 20628446 (Version 1)
Quarter: 2022Q1

REPORT INFORMATION
  Report Type: Spontaneous
  Country: US (occurrence: US)
  Receive Date: 20220323
  Receipt Date: 20220323
  Transmission Date: 20220423
  Serious: No
  Sender: FDA-Public Use
  Company Number: US-ELI_LILLY_AND_COMPANY-US202203007850

PATIENT
  Sex: Female

DRUGS (2)
  1. FORTEO [Suspect]
     Active Substance: TERIPARATIDE
     Indication: Osteoporosis
     Dosage: 1 DOSAGE FORM, QOD
     Route: 065
     Dates: start: 202201
  2. FORTEO [Suspect]
     Active Substance: TERIPARATIDE
     Dosage: UNK UNK, UNKNOWN
     Route: 065

REACTIONS (9)
  - Confusional state [Unknown]
  - Feeling abnormal [Unknown]
  - Thinking abnormal [Unknown]
  - Dysgeusia [Unknown]
  - Insomnia [Unknown]
  - Dizziness [Unknown]
  - Abdominal pain upper [Unknown]
  - Stress [Unknown]
  - Inappropriate schedule of product administration [Unknown]
